FAERS Safety Report 11077418 (Version 2)
Quarter: 2015Q2

REPORT INFORMATION
  Report Type: Spontaneous
  Country: US (occurrence: US)
  Receive Date: 20150430
  Receipt Date: 20150526
  Transmission Date: 20150821
  Serious: No
  Sender: FDA-Public Use
  Company Number: US-JNJFOC-20140612044

PATIENT

DRUGS (4)
  1. REMINYL [Suspect]
     Active Substance: GALANTAMINE
     Indication: IVTH NERVE DISORDER
     Route: 048
  2. NIVALIN [Suspect]
     Active Substance: GALANTAMINE HYDROBROMIDE
     Indication: IIIRD NERVE PARALYSIS
     Route: 065
  3. REMINYL [Suspect]
     Active Substance: GALANTAMINE
     Indication: IIIRD NERVE PARALYSIS
     Route: 048
  4. NIVALIN [Suspect]
     Active Substance: GALANTAMINE HYDROBROMIDE
     Indication: IVTH NERVE DISORDER
     Route: 065

REACTIONS (2)
  - Product use issue [Unknown]
  - Therapeutic response unexpected [Unknown]
